FAERS Safety Report 9845972 (Version 1)
Quarter: 2014Q1

REPORT INFORMATION
  Report Type: Spontaneous
  Country: US (occurrence: US)
  Receive Date: 20140127
  Receipt Date: 20140127
  Transmission Date: 20141002
  Serious: Yes (Other)
  Sender: FDA-Public Use
  Company Number: US-BAYER-2014-011792

PATIENT
  Age: 25 Year
  Sex: Female

DRUGS (1)
  1. MIRENA [Suspect]
     Indication: MENSTRUATION IRREGULAR
     Dosage: UNK
     Route: 015
     Dates: start: 2012

REACTIONS (2)
  - Embedded device [Not Recovered/Not Resolved]
  - Device difficult to use [Not Recovered/Not Resolved]
